FAERS Safety Report 9291155 (Version 1)
Quarter: 2013Q2

REPORT INFORMATION
  Report Type: Spontaneous
  Country: ZA (occurrence: ZA)
  Receive Date: 20130515
  Receipt Date: 20130515
  Transmission Date: 20140414
  Serious: Yes (Other)
  Sender: FDA-Public Use
  Company Number: ZA-BAYER-2013-052890

PATIENT
  Age: 63 Year
  Sex: Female
  Weight: 134 kg

DRUGS (9)
  1. MIRENA [Suspect]
     Indication: PROPHYLAXIS
     Dosage: 20 MCG/24HR, CONT
     Route: 015
     Dates: start: 20110530, end: 20130415
  2. PAROVEN [Concomitant]
  3. ELTROXIN [Concomitant]
  4. ZIAC [Concomitant]
  5. COZAAR [Concomitant]
  6. UNAT [Concomitant]
  7. CRESTOR [Concomitant]
  8. ESTROGEN [Concomitant]
  9. INSULIN [Concomitant]

REACTIONS (3)
  - Endometrial hyperplasia [None]
  - Uterine haemorrhage [None]
  - Cervical polyp [None]
